FAERS Safety Report 6785226-4 (Version None)
Quarter: 2010Q2

REPORT INFORMATION
  Report Type: 
  Country: None (occurrence: None)
  Receive Date: 20100622
  Receipt Date: 20100622
  Transmission Date: 20101027
  Serious: Yes (Other)
  Sender: FDA-Public Use
  Company Number: None

PATIENT
  Age: 25 Year
  Sex: Female
  Weight: 65.7716 kg

DRUGS (1)
  1. BUDEPRION SR 150 MG [Suspect]
     Dosage: 150 MG 2 TIMES A DAY PO
     Route: 048

REACTIONS (3)
  - PANIC ATTACK [None]
  - SEDATION [None]
  - TREMOR [None]
